FAERS Safety Report 13197005 (Version 1)
Quarter: 2017Q1

REPORT INFORMATION
  Report Type: Spontaneous
  Country: EG (occurrence: EG)
  Receive Date: 20170208
  Receipt Date: 20170208
  Transmission Date: 20170428
  Serious: Yes (Other)
  Sender: FDA-Public Use
  Company Number: EG-JNJFOC-20170203026

PATIENT

DRUGS (22)
  1. CYCLOPHOSPHAMIDE. [Suspect]
     Active Substance: CYCLOPHOSPHAMIDE
     Indication: HAEMATOLOGICAL MALIGNANCY
     Route: 065
  2. NILOTINIB [Suspect]
     Active Substance: NILOTINIB
     Indication: HAEMATOLOGICAL MALIGNANCY
     Route: 065
  3. BLEOMYCIN [Suspect]
     Active Substance: BLEOMYCIN SULFATE
     Indication: HAEMATOLOGICAL MALIGNANCY
     Route: 065
  4. THALIDOMIDE [Suspect]
     Active Substance: THALIDOMIDE
     Indication: HAEMATOLOGICAL MALIGNANCY
     Route: 065
  5. CHLORAMBUCIL [Suspect]
     Active Substance: CHLORAMBUCIL
     Indication: HAEMATOLOGICAL MALIGNANCY
     Route: 065
  6. DACARBAZINE. [Suspect]
     Active Substance: DACARBAZINE
     Indication: HAEMATOLOGICAL MALIGNANCY
     Route: 065
  7. MITOXANTRONE [Suspect]
     Active Substance: MITOXANTRONE HYDROCHLORIDE
     Indication: HAEMATOLOGICAL MALIGNANCY
     Route: 065
  8. CISPLATIN. [Suspect]
     Active Substance: CISPLATIN
     Indication: HAEMATOLOGICAL MALIGNANCY
     Route: 065
  9. VINBLASTINE [Suspect]
     Active Substance: VINBLASTINE
     Indication: HAEMATOLOGICAL MALIGNANCY
     Route: 065
  10. VINCRISTINE [Suspect]
     Active Substance: VINCRISTINE
     Indication: HAEMATOLOGICAL MALIGNANCY
     Route: 065
  11. ETOPOSIDE. [Suspect]
     Active Substance: ETOPOSIDE
     Indication: HAEMATOLOGICAL MALIGNANCY
     Route: 065
  12. L-ASPARAGINASE [Suspect]
     Active Substance: ASPARAGINASE
     Indication: HAEMATOLOGICAL MALIGNANCY
     Route: 065
  13. DOXORUBICIN HYDROCHLORIDE. [Suspect]
     Active Substance: DOXORUBICIN HYDROCHLORIDE
     Indication: HAEMATOLOGICAL MALIGNANCY
     Route: 065
  14. CYTARABINE. [Suspect]
     Active Substance: CYTARABINE
     Indication: HAEMATOLOGICAL MALIGNANCY
     Route: 065
  15. TRETINOIN. [Suspect]
     Active Substance: TRETINOIN
     Indication: HAEMATOLOGICAL MALIGNANCY
     Route: 065
  16. METHOTREXATE. [Suspect]
     Active Substance: METHOTREXATE
     Indication: HAEMATOLOGICAL MALIGNANCY
     Route: 065
  17. IMATINIB [Suspect]
     Active Substance: IMATINIB
     Indication: HAEMATOLOGICAL MALIGNANCY
     Route: 065
  18. DAUNORUBICIN [Suspect]
     Active Substance: DAUNORUBICIN
     Indication: HAEMATOLOGICAL MALIGNANCY
     Route: 065
  19. HYDROXYUREA. [Suspect]
     Active Substance: HYDROXYUREA
     Indication: HAEMATOLOGICAL MALIGNANCY
     Route: 065
  20. LEUCOVORIN. [Suspect]
     Active Substance: LEUCOVORIN
     Indication: HAEMATOLOGICAL MALIGNANCY
     Route: 065
  21. PROCARBAZINE [Suspect]
     Active Substance: PROCARBAZINE
     Indication: HAEMATOLOGICAL MALIGNANCY
     Route: 065
  22. MERCAPTOPURINE. [Suspect]
     Active Substance: MERCAPTOPURINE
     Indication: HAEMATOLOGICAL MALIGNANCY
     Route: 065

REACTIONS (17)
  - Haemorrhage [Unknown]
  - Pigmentation disorder [Unknown]
  - Adverse event [Unknown]
  - Dermatitis acneiform [Unknown]
  - Off label use [Unknown]
  - Mucosal inflammation [Unknown]
  - Nail pigmentation [Unknown]
  - Infection [Unknown]
  - Product use issue [Unknown]
  - Plantar erythema [Unknown]
  - Paraneoplastic syndrome [Unknown]
  - Extravasation [Unknown]
  - Atrophic glossitis [Unknown]
  - Acne [Unknown]
  - Alopecia [Unknown]
  - Skin atrophy [Unknown]
  - Nail disorder [Unknown]
